FAERS Safety Report 15408428 (Version 1)
Quarter: 2018Q3

REPORT INFORMATION
  Report Type: Spontaneous
  Country: DE (occurrence: DE)
  Receive Date: 20180920
  Receipt Date: 20180920
  Transmission Date: 20181010
  Serious: Yes (Hospitalization)
  Sender: FDA-Public Use
  Company Number: DE-SA-2017SA234972

PATIENT
  Age: 43 Year
  Sex: Male
  Weight: 77 kg

DRUGS (10)
  1. METOPROLOL TARTRATE. [Concomitant]
     Active Substance: METOPROLOL TARTRATE
     Indication: HYPERTENSION
     Dosage: 95 MG,QD
     Route: 065
  2. MELNEURIN [Concomitant]
     Active Substance: MELPERONE HYDROCHLORIDE
     Indication: SLEEP DISORDER
     Dosage: 25 MG / 50 MG
     Route: 048
     Dates: start: 20171023, end: 20171024
  3. ZOPICLONE [Concomitant]
     Active Substance: ZOPICLONE
     Indication: SLEEP DISORDER
     Dosage: 7.5 MG,UNK
     Route: 048
     Dates: start: 20171026, end: 20171027
  4. MIRTAZAPINE. [Suspect]
     Active Substance: MIRTAZAPINE
     Dosage: UNK UNK,UNK
     Route: 048
     Dates: start: 20170126, end: 20171028
  5. MIRTAZAPINE. [Suspect]
     Active Substance: MIRTAZAPINE
     Dosage: 15 G,QD
     Route: 048
     Dates: start: 20170126, end: 20171028
  6. RAMIPRIL. [Concomitant]
     Active Substance: RAMIPRIL
     Indication: HYPERTENSION
     Dosage: 5 MG,BID
     Route: 065
  7. IBUPROFEN. [Concomitant]
     Active Substance: IBUPROFEN
     Indication: HYPERTENSION
  8. KIOVIG [Suspect]
     Active Substance: HUMAN IMMUNOGLOBULIN G
     Indication: GUILLAIN-BARRE SYNDROME
     Dosage: 30 G,QD
     Route: 042
     Dates: start: 20171023, end: 20171027
  9. IBUPROFEN. [Concomitant]
     Active Substance: IBUPROFEN
     Indication: PYREXIA
     Dosage: 400 MG,UNK
     Route: 048
     Dates: start: 20171028, end: 20171029
  10. CLEXANE [Suspect]
     Active Substance: ENOXAPARIN SODIUM
     Indication: THROMBOSIS PROPHYLAXIS
     Dosage: 40 MG,QD
     Route: 058
     Dates: start: 20170127, end: 20171028

REACTIONS (3)
  - Ocular icterus [Recovered/Resolved]
  - Pyrexia [Recovered/Resolved]
  - Blood bilirubin increased [Recovered/Resolved]

NARRATIVE: CASE EVENT DATE: 20171029
